FAERS Safety Report 24075510 (Version 1)
Quarter: 2024Q3

REPORT INFORMATION
  Report Type: Report from Study
  Country: US (occurrence: US)
  Receive Date: 20240710
  Receipt Date: 20240710
  Transmission Date: 20241017
  Serious: Yes (Other)
  Sender: BAUSCH AND LOMB
  Company Number: US-BAUSCH-BL-2024-010018

PATIENT
  Age: 62 Year
  Sex: Male

DRUGS (3)
  1. XIFAXAN [Suspect]
     Active Substance: RIFAXIMIN
     Indication: Hepatic cirrhosis
     Route: 048
  2. XIFAXAN [Suspect]
     Active Substance: RIFAXIMIN
     Dosage: 1 TABLET BY MOUTH TWICE DAILY IN THE MORNING AND EVENING
     Route: 048
     Dates: end: 202403
  3. LACTULOSE [Concomitant]
     Active Substance: LACTULOSE
     Indication: Product used for unknown indication

REACTIONS (4)
  - Portal shunt procedure [Unknown]
  - Hepatic cirrhosis [Unknown]
  - Condition aggravated [Unknown]
  - Therapy interrupted [Unknown]
